FAERS Safety Report 22155590 (Version 1)
Quarter: 2023Q1

REPORT INFORMATION
  Report Type: Other
  Country: CN (occurrence: None)
  Receive Date: 20230330
  Receipt Date: 20230330
  Transmission Date: 20230418
  Serious: Yes (Death)
  Sender: FDA-Public Use
  Company Number: CN-ROCHE-3319763

PATIENT
  Age: 60 Year
  Sex: Male

DRUGS (2)
  1. CAPECITABINE [Suspect]
     Active Substance: CAPECITABINE
     Indication: Nasopharyngeal cancer recurrent
     Dosage: 6CYCLE,
     Route: 048
     Dates: start: 20180427, end: 20190831
  2. APATINIB [Suspect]
     Active Substance: APATINIB
     Indication: Nasopharyngeal cancer recurrent
     Dosage: 6 CYCLE,
     Route: 065
     Dates: start: 20180427, end: 20190831

REACTIONS (1)
  - Epistaxis [Fatal]
